FAERS Safety Report 22202961 (Version 6)
Quarter: 2023Q2

REPORT INFORMATION
  Report Type: Report from Study
  Country: JP (occurrence: JP)
  Receive Date: 20230412
  Receipt Date: 20230428
  Transmission Date: 20230722
  Serious: Yes (Death, Life-Threatening, Hospitalization)
  Sender: FDA-Public Use
  Company Number: JP-002147023-NVSC2023JP083328

PATIENT
  Age: 67 Year
  Sex: Female
  Weight: 60.4 kg

DRUGS (43)
  1. PIQRAY [Suspect]
     Active Substance: ALPELISIB
     Indication: Breast cancer
     Dosage: 200 MG, QD
     Route: 048
     Dates: start: 20230303, end: 20230329
  2. FULVESTRANT [Suspect]
     Active Substance: FULVESTRANT
     Indication: Breast cancer
     Dosage: 500 MG, Q2W
     Route: 030
     Dates: start: 20230303, end: 20230329
  3. LOXOPROFEN SODIUM DIHYDRATE [Concomitant]
     Active Substance: LOXOPROFEN SODIUM DIHYDRATE
     Indication: Procedural pain
     Dosage: UNK
     Route: 065
     Dates: start: 20130116, end: 20230410
  4. REBAMIPIDE [Concomitant]
     Active Substance: REBAMIPIDE
     Indication: Procedural pain
     Dosage: UNK
     Route: 065
     Dates: start: 20130116, end: 20230410
  5. SHAKUYAKUKANZOTO [Concomitant]
     Active Substance: HERBALS
     Indication: Muscle spasms
     Dosage: UNK
     Route: 065
     Dates: start: 20210303, end: 20230410
  6. FEXOFENADINE HYDROCHLORIDE [Concomitant]
     Active Substance: FEXOFENADINE HYDROCHLORIDE
     Indication: Prophylaxis
     Dosage: UNK
     Route: 065
     Dates: start: 20230228
  7. VITAMIN A [Concomitant]
     Active Substance: VITAMIN A
     Indication: Rash pustular
     Dosage: UNK (OIL)
     Route: 065
     Dates: start: 20230303
  8. METOCLOPRAMIDE [Concomitant]
     Active Substance: METOCLOPRAMIDE
     Indication: Nausea
     Dosage: UNK
     Route: 065
     Dates: start: 20230305, end: 20230410
  9. HEPARINOID [Concomitant]
     Indication: Rash pustular
     Dosage: UNK
     Route: 065
     Dates: start: 20230313
  10. CLOBETASOL PROPIONATE [Concomitant]
     Active Substance: CLOBETASOL PROPIONATE
     Indication: Rash
     Dosage: UNK
     Route: 065
     Dates: start: 20230317, end: 20230410
  11. CLOBETASOL PROPIONATE [Concomitant]
     Active Substance: CLOBETASOL PROPIONATE
     Indication: Eczema
     Dosage: UNK
     Route: 065
     Dates: start: 20230319, end: 20230410
  12. URSODIOL [Concomitant]
     Active Substance: URSODIOL
     Indication: Liver disorder
     Dosage: UNK
     Route: 065
     Dates: start: 20230317, end: 20230410
  13. WHITE PETROLATUM [Concomitant]
     Active Substance: PETROLATUM
     Indication: Rash
     Dosage: UNK
     Route: 065
     Dates: start: 20230317
  14. WHITE PETROLATUM [Concomitant]
     Active Substance: PETROLATUM
     Route: 065
     Dates: start: 20230317, end: 20230410
  15. PREDNISOLONE [Concomitant]
     Active Substance: PREDNISOLONE
     Indication: Rash
     Dosage: UNK
     Route: 065
     Dates: start: 20230325, end: 20230327
  16. PREDNISOLONE [Concomitant]
     Active Substance: PREDNISOLONE
     Dosage: UNK
     Route: 065
     Dates: start: 20230328, end: 20230330
  17. PREDNISOLONE [Concomitant]
     Active Substance: PREDNISOLONE
     Dosage: UNK
     Route: 065
     Dates: start: 20230329, end: 20230329
  18. PREDNISOLONE [Concomitant]
     Active Substance: PREDNISOLONE
     Dosage: UNK
     Route: 065
     Dates: start: 20230328, end: 20230328
  19. PREDNISOLONE [Concomitant]
     Active Substance: PREDNISOLONE
     Dosage: UNK
     Route: 065
     Dates: start: 20230330, end: 20230330
  20. PENTAZOCINE [Concomitant]
     Active Substance: PENTAZOCINE
     Indication: Pain
     Dosage: UNK
     Route: 065
     Dates: start: 20230329, end: 20230329
  21. TRAMADOL HYDROCHLORIDE AND ACETAMINOPHEN [Concomitant]
     Active Substance: ACETAMINOPHEN\TRAMADOL HYDROCHLORIDE
     Indication: Pain
     Dosage: UNK
     Route: 065
     Dates: start: 20230329, end: 20230401
  22. SOLU-MEDROL [Concomitant]
     Active Substance: METHYLPREDNISOLONE SODIUM SUCCINATE
     Indication: Pneumonia
     Dosage: UNK
     Route: 065
     Dates: start: 20230315, end: 20230417
  23. CEFTRIAXONE [Concomitant]
     Active Substance: CEFTRIAXONE
     Indication: Prophylaxis
     Dosage: UNK
     Route: 065
     Dates: start: 20230411, end: 20230417
  24. OMEPRAZOLE [Concomitant]
     Active Substance: OMEPRAZOLE
     Indication: Prophylaxis
     Dosage: UNK
     Route: 065
     Dates: start: 20230411, end: 20230417
  25. ZITHROMAX [Concomitant]
     Active Substance: AZITHROMYCIN DIHYDRATE
     Indication: Prophylaxis
     Dosage: UNK
     Route: 065
     Dates: start: 20230411, end: 20230413
  26. CYCLOPHOSPHAMIDE [Concomitant]
     Active Substance: CYCLOPHOSPHAMIDE
     Indication: Dermatomyositis
     Dosage: UNK
     Route: 065
     Dates: start: 20230414, end: 20230414
  27. HEPARIN SODIUM [Concomitant]
     Active Substance: HEPARIN SODIUM
     Indication: Disseminated intravascular coagulation
     Dosage: UNK
     Route: 065
     Dates: start: 20230414, end: 20230414
  28. MESNA [Concomitant]
     Active Substance: MESNA
     Indication: Prophylaxis
     Dosage: UNK
     Route: 065
     Dates: start: 20230414, end: 20230414
  29. ONDANSETRON [Concomitant]
     Active Substance: ONDANSETRON
     Indication: Prophylaxis
     Dosage: UNK
     Route: 065
     Dates: start: 20230414, end: 20230414
  30. HYDROXYZINE HYDROCHLORIDE [Concomitant]
     Active Substance: HYDROXYZINE HYDROCHLORIDE
     Indication: Pain
     Dosage: UNK
     Route: 065
     Dates: start: 20230329, end: 20230329
  31. MAGNESIUM OXIDE [Concomitant]
     Active Substance: MAGNESIUM OXIDE
     Indication: Constipation
     Dosage: UNK
     Route: 065
     Dates: start: 20230330, end: 20230405
  32. MICONAZOLE [Concomitant]
     Active Substance: MICONAZOLE
     Indication: Oral candidiasis
     Dosage: UNK
     Route: 065
     Dates: start: 20230407, end: 20230410
  33. ACETAMINOPHEN [Concomitant]
     Active Substance: ACETAMINOPHEN
     Indication: Dermatomyositis
     Dosage: UNK
     Route: 065
     Dates: start: 20230411, end: 20230414
  34. MORPHINE HYDROCHLORIDE [Concomitant]
     Active Substance: MORPHINE HYDROCHLORIDE
     Indication: Dyspnoea
     Dosage: UNK
     Route: 065
     Dates: start: 20230411
  35. TACROLIMUS [Concomitant]
     Active Substance: TACROLIMUS
     Indication: Dermatomyositis
     Dosage: UNK
     Route: 065
     Dates: start: 20230414, end: 20230417
  36. BISOPROLOL [Concomitant]
     Active Substance: BISOPROLOL
     Indication: Product used for unknown indication
     Dosage: UNK
     Route: 065
     Dates: start: 20230415, end: 20230417
  37. CARBAZOCHROME SODIUM SULFONATE [Concomitant]
     Active Substance: CARBAZOCHROME SODIUM SULFONATE
     Indication: Haemostasis
     Dosage: UNK
     Route: 065
     Dates: start: 20230415, end: 20230417
  38. INSULIN HUMAN [Concomitant]
     Active Substance: INSULIN HUMAN
     Indication: Diabetes mellitus
     Dosage: UNK
     Route: 065
     Dates: start: 20230415
  39. THIAMINE DISULFIDE PHOSPHATE [Concomitant]
     Indication: Prophylaxis
     Dosage: UNK
     Route: 065
     Dates: start: 20230415
  40. TRANEXAMIC ACID [Concomitant]
     Active Substance: TRANEXAMIC ACID
     Indication: Haemostasis
     Dosage: UNK
     Route: 065
     Dates: start: 20230415, end: 20230417
  41. FUROSEMIDE [Concomitant]
     Active Substance: FUROSEMIDE
     Indication: Diuretic therapy
     Dosage: UNK
     Route: 065
     Dates: start: 20230416, end: 20230416
  42. MIDAZOLAM [Concomitant]
     Active Substance: MIDAZOLAM
     Indication: Sedative therapy
     Dosage: UNK
     Route: 065
     Dates: start: 20230417
  43. SODIUM PICOSULFATE [Concomitant]
     Active Substance: SODIUM PICOSULFATE
     Indication: Prophylaxis
     Dosage: UNK
     Route: 065
     Dates: start: 20230417

REACTIONS (1)
  - Interstitial lung disease [Fatal]

NARRATIVE: CASE EVENT DATE: 20230410
